FAERS Safety Report 10005904 (Version 1)
Quarter: 2014Q1

REPORT INFORMATION
  Report Type: Spontaneous
  Country: US (occurrence: US)
  Receive Date: 20140313
  Receipt Date: 20140313
  Transmission Date: 20141002
  Serious: Yes (Death, Hospitalization)
  Sender: FDA-Public Use
  Company Number: US-JNJFOC-20140303625

PATIENT
  Age: 56 Year
  Sex: Male
  Weight: 91.2 kg

DRUGS (7)
  1. FENTANYL TRANDERMAL SYSTEM [Suspect]
     Indication: PAIN
     Route: 062
     Dates: end: 20130702
  2. NEURONTIN [Suspect]
     Indication: PRODUCT USED FOR UNKNOWN INDICATION
     Route: 065
  3. MORPHINE SULFATE [Suspect]
     Indication: PRODUCT USED FOR UNKNOWN INDICATION
     Route: 065
  4. ZOFRAN [Suspect]
     Indication: PRODUCT USED FOR UNKNOWN INDICATION
     Route: 065
  5. ATENIX [Concomitant]
     Route: 065
  6. METHADONE [Concomitant]
     Route: 065
  7. GABAPENTIN [Concomitant]
     Route: 065

REACTIONS (5)
  - Oesophageal carcinoma [Fatal]
  - Mental status changes [Unknown]
  - Dehydration [Unknown]
  - Anaemia [Unknown]
  - Platelet count decreased [Unknown]
